FAERS Safety Report 10773068 (Version 2)
Quarter: 2016Q1

REPORT INFORMATION
  Report Type: Other
  Country: US (occurrence: US)
  Receive Date: 20150207
  Receipt Date: 20160219
  Transmission Date: 20160525
  Serious: No
  Sender: FDA-Public Use
  Company Number: US-ACORDA-ACO_106621_2014

PATIENT
  Sex: Female
  Weight: 61.22 kg

DRUGS (8)
  1. NEURONTIN [Suspect]
     Active Substance: GABAPENTIN
     Indication: MUSCLE TIGHTNESS
     Dosage: 100 MG, EVERY EVENING
     Route: 065
     Dates: start: 201408
  2. AMPYRA [Suspect]
     Active Substance: DALFAMPRIDINE
     Indication: GAIT DISTURBANCE
     Dosage: 10 MG, EVERY 12 HOURS
     Route: 048
     Dates: start: 2014, end: 201409
  3. VITAMIN D [Concomitant]
     Active Substance: CHOLECALCIFEROL
     Indication: PRODUCT USED FOR UNKNOWN INDICATION
     Dosage: UNK
     Route: 065
  4. BALCOFEN [Suspect]
     Active Substance: BACLOFEN
     Dosage: UNK
     Dates: start: 201410
  5. HYDROCODONE [Concomitant]
     Active Substance: HYDROCODONE
     Indication: PRODUCT USED FOR UNKNOWN INDICATION
     Dosage: UNK, PRN
     Route: 065
  6. NEURONTIN [Suspect]
     Active Substance: GABAPENTIN
     Dosage: 200 MG, EVERY EVENING
     Route: 065
  7. NEURONTIN [Suspect]
     Active Substance: GABAPENTIN
     Dosage: 300 MG, EVERY EVENING
     Route: 065
     Dates: end: 201409
  8. CYCLOBENZAPRINE [Concomitant]
     Active Substance: CYCLOBENZAPRINE
     Indication: PRODUCT USED FOR UNKNOWN INDICATION
     Dosage: 10 MG, PRN
     Route: 065

REACTIONS (4)
  - Stomatitis [Recovered/Resolved]
  - Muscle tightness [Not Recovered/Not Resolved]
  - Pain in jaw [Recovered/Resolved]
  - Oral pain [Recovered/Resolved]

NARRATIVE: CASE EVENT DATE: 2014
